FAERS Safety Report 9551563 (Version 2)
Quarter: 2013Q4

REPORT INFORMATION
  Report Type: Spontaneous
  Country: US (occurrence: US)
  Receive Date: 20130925
  Receipt Date: 20131014
  Transmission Date: 20140711
  Serious: Yes (Hospitalization)
  Sender: FDA-Public Use
  Company Number: US-BAYER-2013-115717

PATIENT
  Age: 47 Year
  Sex: Female

DRUGS (6)
  1. YASMIN [Suspect]
     Dosage: UNK
     Dates: start: 2001, end: 2009
  2. OCELLA [Suspect]
     Dosage: UNK
     Dates: start: 2009, end: 201110
  3. PERCOCET [Concomitant]
  4. ALLEGRA [Concomitant]
  5. NASONEX [Concomitant]
     Dosage: 50 MCG
  6. ALBUTEROL [Concomitant]

REACTIONS (7)
  - Pulmonary embolism [Recovered/Resolved]
  - Injury [Recovered/Resolved]
  - Emotional distress [None]
  - Pain [Recovered/Resolved]
  - General physical health deterioration [Recovered/Resolved]
  - Anxiety [None]
  - Pain [None]
